FAERS Safety Report 11155558 (Version 1)
Quarter: 2015Q2

REPORT INFORMATION
  Report Type: Spontaneous
  Country: US (occurrence: None)
  Receive Date: 20150601
  Receipt Date: 20150601
  Transmission Date: 20150821
  Serious: No
  Sender: FDA-Public Use
  Company Number: None

PATIENT
  Age: 74 Year
  Sex: Male
  Weight: 106.6 kg

DRUGS (11)
  1. ALPRAZOLAM - 1MG TAB QUALITEST PHARM [Suspect]
     Active Substance: ALPRAZOLAM
     Indication: SLEEP DISORDER
     Dosage: 1 MG, 2 PILLS, 2-BEDTIME, BY MOUTH
     Route: 048
     Dates: start: 20150220, end: 20150428
  2. METOPROLOL TARTRATE. [Concomitant]
     Active Substance: METOPROLOL TARTRATE
  3. BUPROPION SR [Concomitant]
     Active Substance: BUPROPION
  4. TAMSULOSIN [Concomitant]
     Active Substance: TAMSULOSIN
  5. ELIQUIS [Concomitant]
     Active Substance: APIXABAN
  6. BAYER MEN^S ONE A DAY VITAMIN [Concomitant]
  7. FUROSEMIDE. [Concomitant]
     Active Substance: FUROSEMIDE
  8. OVAR [Concomitant]
  9. PRAVASTATIN [Concomitant]
     Active Substance: PRAVASTATIN\PRAVASTATIN SODIUM
  10. ANORO TM [Concomitant]
  11. OMEGA-3 ACIDS [Suspect]
     Active Substance: OMEGA-3 FATTY ACIDS

REACTIONS (4)
  - Product quality issue [None]
  - Product substitution issue [None]
  - Drug effect decreased [None]
  - Hypervigilance [None]

NARRATIVE: CASE EVENT DATE: 20150220
